FAERS Safety Report 18706281 (Version 1)
Quarter: 2021Q1

REPORT INFORMATION
  Report Type: Spontaneous
  Country: US (occurrence: US)
  Receive Date: 20210106
  Receipt Date: 20210106
  Transmission Date: 20210419
  Serious: Yes (Other)
  Sender: FDA-Public Use
  Company Number: US-MYLANLABS-2020M1106868

PATIENT
  Sex: Female
  Weight: 86.1 kg

DRUGS (2)
  1. PROMETHAZINE [Suspect]
     Active Substance: PROMETHAZINE HYDROCHLORIDE
     Indication: VOMITING
     Dosage: UNK
     Route: 065
  2. AMOXICILLIN. [Suspect]
     Active Substance: AMOXICILLIN
     Indication: PRODUCT USED FOR UNKNOWN INDICATION
     Dosage: UNK

REACTIONS (7)
  - Movement disorder [Unknown]
  - Diarrhoea [Unknown]
  - Vomiting [Unknown]
  - Myalgia [Unknown]
  - Loss of consciousness [Recovering/Resolving]
  - Dyspnoea [Unknown]
  - Peripheral coldness [Unknown]
